FAERS Safety Report 10520822 (Version 1)
Quarter: 2014Q4

REPORT INFORMATION
  Report Type: Report from Study
  Country: AU (occurrence: AU)
  Receive Date: 20141015
  Receipt Date: 20141015
  Transmission Date: 20150528
  Serious: Yes (Hospitalization)
  Sender: FDA-Public Use
  Company Number: PHHY2014AU133551

PATIENT
  Sex: Male

DRUGS (1)
  1. CLOZARIL [Suspect]
     Active Substance: CLOZAPINE
     Indication: SCHIZOPHRENIA
     Dosage: 150 (UNIT UNSPECIFIED)
     Route: 048
     Dates: start: 19970327, end: 20141009

REACTIONS (2)
  - Hypothalamo-pituitary disorder [Unknown]
  - Diarrhoea [Unknown]
